FAERS Safety Report 6817413-0 (Version None)
Quarter: 2010Q3

REPORT INFORMATION
  Report Type: 
  Country: None (occurrence: None)
  Receive Date: 20100706
  Receipt Date: 20100617
  Transmission Date: 20110219
  Serious: Yes (Hospitalization)
  Sender: FDA-Public Use
  Company Number: A0851838A

PATIENT
  Sex: Male

DRUGS (3)
  1. AVODART [Suspect]
     Indication: BENIGN PROSTATIC HYPERPLASIA
     Dosage: .5MG PER DAY
     Route: 048
  2. ANTIHYPERTENSIVE [Concomitant]
     Indication: HYPERTENSION
  3. DIABETES MEDICATION [Concomitant]
     Indication: DIABETES MELLITUS

REACTIONS (3)
  - GASTRIC HAEMORRHAGE [None]
  - HAEMATEMESIS [None]
  - MELAENA [None]
